FAERS Safety Report 25919988 (Version 1)
Quarter: 2025Q4

REPORT INFORMATION
  Report Type: Spontaneous
  Country: US (occurrence: None)
  Receive Date: 20251014
  Receipt Date: 20251014
  Transmission Date: 20260118
  Serious: Yes (Other)
  Sender: FDA-CTU
  Company Number: None

PATIENT

DRUGS (1)
  1. CITALOPRAM [Suspect]
     Active Substance: CITALOPRAM

REACTIONS (12)
  - Dizziness [None]
  - Fatigue [None]
  - Anxiety [None]
  - Depression [None]
  - Palpitations [None]
  - Postural orthostatic tachycardia syndrome [None]
  - Ehlers-Danlos syndrome [None]
  - Drug ineffective [None]
  - Depressed mood [None]
  - Family stress [None]
  - Emotional distress [None]
  - Withdrawal syndrome [None]

NARRATIVE: CASE EVENT DATE: 20161009
